FAERS Safety Report 17192223 (Version 1)
Quarter: 2019Q4

REPORT INFORMATION
  Report Type: Spontaneous
  Country: US (occurrence: US)
  Receive Date: 20191223
  Receipt Date: 20191223
  Transmission Date: 20200122
  Serious: No
  Sender: FDA-Public Use
  Company Number: US-LEO PHARMA-327134

PATIENT
  Age: 72 Year
  Sex: Female

DRUGS (1)
  1. PICATO [Suspect]
     Active Substance: INGENOL MEBUTATE
     Indication: SQUAMOUS CELL CARCINOMA
     Route: 061
     Dates: start: 20191213

REACTIONS (5)
  - Application site pain [Recovering/Resolving]
  - Application site erosion [Unknown]
  - Product use in unapproved indication [Unknown]
  - Application site erythema [Recovering/Resolving]
  - Application site discharge [Recovering/Resolving]

NARRATIVE: CASE EVENT DATE: 20191213
